FAERS Safety Report 5824094-1 (Version None)
Quarter: 2008Q3

REPORT INFORMATION
  Report Type: 
  Country: None (occurrence: None)
  Receive Date: 20080728
  Receipt Date: 20080714
  Transmission Date: 20090109
  Serious: Yes (Other)
  Sender: FDA-Public Use
  Company Number: PHHY2008JP14283

PATIENT
  Sex: Male

DRUGS (2)
  1. TEGRETOL [Suspect]
     Indication: EPILEPSY
     Dosage: 300 MG IN THE MORNING AND 300 MG IN THE EVENING
     Route: 048
  2. DEPAKENE [Concomitant]
     Indication: EPILEPSY
     Dosage: 600 MG DAILY
     Route: 048

REACTIONS (2)
  - GYNAECOMASTIA [None]
  - PENILE SIZE REDUCED [None]
